FAERS Safety Report 5230948-X (Version None)
Quarter: 2007Q1

REPORT INFORMATION
  Report Type: 
  Country: None (occurrence: None)
  Receive Date: 20070206
  Receipt Date: 20070131
  Transmission Date: 20070707
  Serious: Yes (Other)
  Sender: FDA-Public Use
  Company Number: GB-GLAXOSMITHKLINE-B0360684A

PATIENT
  Sex: Female

DRUGS (11)
  1. PAROXETINE HYDROCHLORIDE [Suspect]
     Route: 065
  2. ACAMPROSATE [Concomitant]
  3. ZOPICLONE [Concomitant]
  4. STELAZINE [Concomitant]
  5. PARACETAMOL [Concomitant]
  6. CHLORPHENIRAMINE MALEATE [Concomitant]
  7. LORAZEPAM [Concomitant]
  8. VOLTAREN [Concomitant]
  9. PERICYAZINE [Concomitant]
  10. DIAZEPAM [Concomitant]
  11. PERICYAZINE [Concomitant]
     Route: 065

REACTIONS (7)
  - DRUG WITHDRAWAL SYNDROME [None]
  - HALLUCINATION, AUDITORY [None]
  - INTENTIONAL SELF-INJURY [None]
  - OVERDOSE [None]
  - PANIC ATTACK [None]
  - SUICIDAL IDEATION [None]
  - THERMAL BURN [None]
